FAERS Safety Report 9523575 (Version 1)
Quarter: 2013Q3

REPORT INFORMATION
  Report Type: Spontaneous
  Country: AU (occurrence: AU)
  Receive Date: 20130913
  Receipt Date: 20130913
  Transmission Date: 20140515
  Serious: Yes (Other)
  Sender: FDA-Public Use
  Company Number: PHHY2013AU098058

PATIENT
  Age: 26 Year
  Sex: Female

DRUGS (5)
  1. NALTREXONE [Suspect]
     Route: 048
     Dates: start: 20100127
  2. NALTREXONE [Suspect]
     Dosage: 1500 MG, UNK
     Route: 048
  3. METHADONE [Suspect]
     Dosage: 20 MG, UNK
  4. NALTREXONE [Suspect]
  5. PREDNISONE [Concomitant]
     Dosage: 50 MG, UNK
     Route: 048

REACTIONS (8)
  - Hypertension [Recovered/Resolved]
  - Neutrophilia [Recovered/Resolved]
  - Aphagia [Recovered/Resolved]
  - Gastric dilatation [Recovered/Resolved]
  - Tachycardia [Recovered/Resolved]
  - Vomiting [Recovered/Resolved]
  - Intentional overdose [Recovered/Resolved]
  - Drug dependence [Recovered/Resolved]
